FAERS Safety Report 4919939-3 (Version None)
Quarter: 2006Q1

REPORT INFORMATION
  Report Type: 
  Country: None (occurrence: None)
  Receive Date: 20060223
  Receipt Date: 20060213
  Transmission Date: 20060701
  Serious: Yes (Disabling)
  Sender: FDA-Public Use
  Company Number: PHFR2006GB00857

PATIENT
  Age: 71 Year
  Sex: Female

DRUGS (1)
  1. DICLOFENAC [Suspect]
     Indication: OSTEOARTHRITIS
     Dosage: 75MG/DAY
     Route: 048
     Dates: start: 19740101

REACTIONS (1)
  - NEUROPATHY PERIPHERAL [None]
